FAERS Safety Report 12680425 (Version 8)
Quarter: 2025Q1

REPORT INFORMATION
  Report Type: Spontaneous
  Country: US (occurrence: US)
  Receive Date: 20160824
  Receipt Date: 20250317
  Transmission Date: 20250409
  Serious: Yes (Other)
  Sender: PFIZER
  Company Number: US-PFIZER INC-2016392926

PATIENT
  Age: 52 Year
  Sex: Female
  Weight: 74.84 kg

DRUGS (3)
  1. IBRANCE [Suspect]
     Active Substance: PALBOCICLIB
     Indication: Breast cancer female
     Route: 048
     Dates: start: 201606
  2. IBRANCE [Suspect]
     Active Substance: PALBOCICLIB
     Indication: Breast cancer metastatic
  3. FASLODEX [Concomitant]
     Active Substance: FULVESTRANT

REACTIONS (5)
  - White blood cell count decreased [Recovered/Resolved]
  - Muscle rupture [Recovering/Resolving]
  - Product dose omission issue [Unknown]
  - Stomatitis [Unknown]
  - Soft tissue swelling [Recovering/Resolving]

NARRATIVE: CASE EVENT DATE: 20160801
